FAERS Safety Report 8546813-6 (Version None)
Quarter: 2012Q3

REPORT INFORMATION
  Report Type: 
  Country: None (occurrence: None)
  Receive Date: 20120727
  Receipt Date: 20120202
  Transmission Date: 20120928
  Serious: No
  Sender: FDA-Public Use
  Company Number: US-ASTRAZENECA-2012SE07545

PATIENT
  Age: 57 Year
  Sex: Male
  Weight: 87.1 kg

DRUGS (7)
  1. TRANZENE [Concomitant]
     Indication: ANXIETY
  2. RAPAFLO [Concomitant]
     Indication: PROSTATOMEGALY
  3. CYMBALTA [Concomitant]
  4. TRAMADOL HYDROCHLORIDE [Concomitant]
     Indication: BACK PAIN
  5. CLONAZEPAM [Concomitant]
     Indication: ANXIETY
  6. TRAMADOL HYDROCHLORIDE [Concomitant]
     Indication: HEADACHE
  7. SEROQUEL XR [Suspect]
     Indication: DEPRESSION
     Route: 048

REACTIONS (9)
  - ANXIETY [None]
  - WITHDRAWAL SYNDROME [None]
  - CRYING [None]
  - MOOD SWINGS [None]
  - DEPRESSION [None]
  - MENTAL DISORDER [None]
  - INSOMNIA [None]
  - WEIGHT INCREASED [None]
  - DRUG DOSE OMISSION [None]
